FAERS Safety Report 5672762-7 (Version None)
Quarter: 2008Q1

REPORT INFORMATION
  Report Type: 
  Country: None (occurrence: None)
  Receive Date: 20080319
  Receipt Date: 20070321
  Transmission Date: 20080703
  Serious: No
  Sender: FDA-Public Use
  Company Number: US-KINGPHARMUSA00001-K200700336

PATIENT

DRUGS (3)
  1. ALTACE [Suspect]
     Indication: HYPERTENSION
     Dosage: 20 MG, QD
     Route: 048
     Dates: start: 20070301
  2. TOPROL-XL [Concomitant]
     Indication: ARRHYTHMIA
     Dosage: UNK, QD
     Route: 048
     Dates: start: 20060101
  3. DIOVAN    /01319601/ [Concomitant]
     Dosage: UNK, QD
     Route: 048
     Dates: start: 20061201

REACTIONS (1)
  - SOMNOLENCE [None]
